FAERS Safety Report 6669757-3 (Version None)
Quarter: 2010Q2

REPORT INFORMATION
  Report Type: 
  Country: None (occurrence: None)
  Receive Date: 20100406
  Receipt Date: 20100331
  Transmission Date: 20101027
  Serious: Yes (Other)
  Sender: FDA-Public Use
  Company Number: FR-GILEAD-2010-0028230

PATIENT
  Sex: Male
  Weight: 73 kg

DRUGS (4)
  1. TENOFOVIR DISOPROXIL FUMARATE [Suspect]
     Indication: HEPATITIS B
     Route: 048
     Dates: start: 20070316
  2. PYOSTACINE [Concomitant]
     Indication: RASH
  3. NERISONE [Concomitant]
     Indication: RASH
  4. AERIUS [Concomitant]
     Indication: RASH

REACTIONS (1)
  - OSTEOPOROSIS [None]
